FAERS Safety Report 13126367 (Version 3)
Quarter: 2017Q1

REPORT INFORMATION
  Report Type: Report from Study
  Country: GR (occurrence: GR)
  Receive Date: 20170118
  Receipt Date: 20170208
  Transmission Date: 20170428
  Serious: Yes (Life-Threatening, Other)
  Sender: FDA-Public Use
  Company Number: PHHY2017GR004825

PATIENT
  Age: 62 Year
  Sex: Female
  Weight: 55 kg

DRUGS (3)
  1. SINTROM [Concomitant]
     Active Substance: ACENOCOUMAROL
     Indication: VENOUS THROMBOSIS
     Dosage: 0.5 DF, UNK
     Route: 065
     Dates: start: 20160905
  2. BOSENTAN. [Concomitant]
     Active Substance: BOSENTAN
     Indication: PRODUCT USED FOR UNKNOWN INDICATION
     Route: 065
  3. EXJADE [Suspect]
     Active Substance: DEFERASIROX
     Indication: THALASSAEMIA
     Dosage: 1500 MG, QD
     Route: 048
     Dates: start: 20160915, end: 20161229

REACTIONS (9)
  - Haemoglobin decreased [Unknown]
  - Hypovolaemia [Recovered/Resolved]
  - Peptic ulcer [Recovered/Resolved]
  - Melaena [Recovered/Resolved]
  - Upper gastrointestinal haemorrhage [Recovered/Resolved]
  - Haematochezia [Unknown]
  - Abdominal tenderness [Unknown]
  - Vomiting [Unknown]
  - Haemodynamic instability [Recovered/Resolved]

NARRATIVE: CASE EVENT DATE: 20161229
